FAERS Safety Report 23607396 (Version 1)
Quarter: 2024Q1

REPORT INFORMATION
  Report Type: Spontaneous
  Country: US (occurrence: US)
  Receive Date: 20240307
  Receipt Date: 20240307
  Transmission Date: 20240409
  Serious: No
  Sender: FDA-Public Use
  Company Number: US-AMGEN-USASP2024047250

PATIENT
  Age: 67 Year
  Sex: Female

DRUGS (2)
  1. MVASI [Suspect]
     Active Substance: BEVACIZUMAB-AWWB
     Indication: Fallopian tube cancer
     Dosage: 1600 MILLIGRAM, FOUR VIALS OF 400 MG
     Route: 065
  2. MVASI [Suspect]
     Active Substance: BEVACIZUMAB-AWWB
     Dosage: 1600 MILLIGRAM, FOUR VIALS OF 400 MG
     Route: 065

REACTIONS (1)
  - Infusion related reaction [Unknown]

NARRATIVE: CASE EVENT DATE: 20240228
